FAERS Safety Report 7080327-8 (Version None)
Quarter: 2010Q4

REPORT INFORMATION
  Report Type: 
  Country: None (occurrence: None)
  Receive Date: 20101103
  Receipt Date: 20100517
  Transmission Date: 20110411
  Serious: Yes (Other)
  Sender: FDA-Public Use
  Company Number: US-ASTRAZENECA-2007UW12230

PATIENT
  Age: 13361 Day
  Sex: Male
  Weight: 83 kg

DRUGS (17)
  1. SEROQUEL [Suspect]
     Indication: SLEEP DISORDER
     Dosage: 200-800 MG
     Route: 048
     Dates: start: 20041029
  2. SEROQUEL [Suspect]
     Route: 048
     Dates: start: 20050705, end: 20050801
  3. TOPROL-XL [Concomitant]
     Dates: start: 20060721
  4. ZOLOFT [Concomitant]
     Dosage: 50-100 MG
     Dates: start: 20030613
  5. ZOLOFT [Concomitant]
     Dates: start: 20060721
  6. DIOVAN [Concomitant]
     Dates: start: 20060721
  7. CYMBALTA [Concomitant]
     Indication: ANXIETY
     Dosage: 30-60 MG
     Dates: start: 20060314
  8. CYMBALTA [Concomitant]
     Indication: DEPRESSION
     Dosage: 30-60 MG
     Dates: start: 20060314
  9. PREDNISONE [Concomitant]
     Dates: start: 20050620
  10. ALPRAZOLAM [Concomitant]
     Dates: start: 20050513
  11. BUSPIRONE HCL [Concomitant]
     Dates: start: 20050706
  12. LISINOPRIL [Concomitant]
     Dates: start: 20041029
  13. PAXIL [Concomitant]
     Dates: start: 20041112
  14. PROZAC [Concomitant]
     Dates: start: 20041112
  15. ZYPREXA [Concomitant]
     Dates: start: 20041112
  16. TRAZODONE [Concomitant]
     Dates: start: 20041112
  17. CLONAZEPAM [Concomitant]
     Dates: start: 20041112

REACTIONS (4)
  - DIABETES MELLITUS [None]
  - DIABETIC NEUROPATHY [None]
  - NEUROPATHY PERIPHERAL [None]
  - TYPE 2 DIABETES MELLITUS [None]
